FAERS Safety Report 20567730 (Version 1)
Quarter: 2022Q1

REPORT INFORMATION
  Report Type: Spontaneous
  Country: US (occurrence: US)
  Receive Date: 20220308
  Receipt Date: 20220308
  Transmission Date: 20220423
  Serious: No
  Sender: FDA-Public Use
  Company Number: US-HORIZON THERAPEUTICS-HZN-2021-003896

PATIENT
  Sex: Female

DRUGS (1)
  1. PENNSAID [Suspect]
     Active Substance: DICLOFENAC SODIUM
     Indication: Oedema peripheral
     Dosage: GEL, BID
     Route: 065
     Dates: start: 20210507, end: 20210627

REACTIONS (1)
  - Drug ineffective for unapproved indication [Unknown]
